FAERS Safety Report 19812927 (Version 1)
Quarter: 2021Q3

REPORT INFORMATION
  Report Type: Spontaneous
  Country: CL (occurrence: CL)
  Receive Date: 20210909
  Receipt Date: 20210909
  Transmission Date: 20211014
  Serious: Yes (Hospitalization, Other)
  Sender: FDA-Public Use
  Company Number: CL-ALVOGEN-2021-ALVOGEN-117446

PATIENT
  Sex: Male
  Weight: 2.55 kg

DRUGS (8)
  1. MIDAZOLAM. [Concomitant]
     Active Substance: MIDAZOLAM
     Indication: ANALGESIC THERAPY
     Route: 064
  2. PROPOFOL. [Concomitant]
     Active Substance: PROPOFOL
     Indication: SEDATION
     Route: 064
  3. FENTANYL. [Suspect]
     Active Substance: FENTANYL
     Indication: SEDATION
     Route: 064
  4. PROPOFOL. [Concomitant]
     Active Substance: PROPOFOL
     Indication: ANALGESIC THERAPY
     Route: 064
  5. FENTANYL. [Suspect]
     Active Substance: FENTANYL
     Indication: ANALGESIC THERAPY
     Route: 064
  6. DEXMEDETOMIDINE. [Concomitant]
     Active Substance: DEXMEDETOMIDINE
     Indication: SEDATION
     Route: 064
  7. DEXMEDETOMIDINE. [Concomitant]
     Active Substance: DEXMEDETOMIDINE
     Indication: ANALGESIC THERAPY
     Route: 064
  8. MIDAZOLAM. [Concomitant]
     Active Substance: MIDAZOLAM
     Indication: SEDATION
     Route: 064

REACTIONS (7)
  - Atonic urinary bladder [Recovered/Resolved]
  - Urinary ascites [Recovered/Resolved]
  - Peritonitis [Recovered/Resolved]
  - Foetal megacystis [Recovered/Resolved]
  - Drug withdrawal syndrome [Recovered/Resolved]
  - Urinary bladder rupture [Recovered/Resolved]
  - Foetal exposure during pregnancy [Recovered/Resolved]
